FAERS Safety Report 9636494 (Version 2)
Quarter: 2013Q4

REPORT INFORMATION
  Report Type: Spontaneous
  Country: US (occurrence: None)
  Receive Date: 20131017
  Receipt Date: 20131125
  Transmission Date: 20140711
  Serious: Yes (Hospitalization, Other)
  Sender: FDA-Public Use
  Company Number: 2013-US-0404

PATIENT
  Age: 69 Year
  Sex: Male

DRUGS (1)
  1. SANCUSO [Suspect]
     Indication: PROPHYLAXIS OF NAUSEA AND VOMITING
     Dosage: 34.3 MG TRANSDERMAL
     Dates: start: 201309

REACTIONS (4)
  - Dizziness [None]
  - Fall [None]
  - Arrhythmia [None]
  - Pneumonia [None]
